FAERS Safety Report 7938573 (Version 2)
Quarter: 2013Q3

REPORT INFORMATION
  Report Type: Report from Study
  Country: CZ (occurrence: CZ)
  Receive Date: 20110510
  Receipt Date: 20130709
  Transmission Date: 20140515
  Serious: Yes (Disabling, Other)
  Sender: FDA-Public Use
  Company Number: CZ-BAYER-2011-033356

PATIENT
  Age: 51 Year
  Sex: Female

DRUGS (2)
  1. NEXAVAR [Suspect]
     Indication: RENAL CANCER
     Dosage: 800 MG, QD
     Route: 048
     Dates: start: 20080106, end: 20081121
  2. NEXAVAR [Suspect]
     Indication: RENAL CANCER
     Dosage: 400 MG, QD
     Route: 048
     Dates: start: 20081127, end: 20090708

REACTIONS (4)
  - Oedema peripheral [Unknown]
  - Skin exfoliation [Unknown]
  - Abasia [Unknown]
  - Arthralgia [Unknown]
